FAERS Safety Report 9638715 (Version 1)
Quarter: 2013Q4

REPORT INFORMATION
  Report Type: Spontaneous
  Country: US (occurrence: None)
  Receive Date: 20131018
  Receipt Date: 20131018
  Transmission Date: 20140711
  Serious: Yes (Other)
  Sender: FDA-Public Use
  Company Number: AUR-APL-2013-08460

PATIENT
  Age: 56 Year
  Sex: Female

DRUGS (11)
  1. RIBAVIRIN [Suspect]
     Indication: CHRONIC HEPATITIS C
     Dosage: (1200 MG, 1 D), UNKNOWN
  2. CITALOPRAM [Suspect]
     Indication: SLEEP DISORDER
     Dosage: (20 MG), UNKNOWN
  3. METFORMIN [Suspect]
     Indication: HEPATIC STEATOSIS
     Route: 058
  4. METFORMIN [Suspect]
     Indication: OFF LABEL USE
     Route: 058
  5. PEGINTERFERON ALFA-2A [Suspect]
     Indication: CHRONIC HEPATITIS C
  6. TELAPREVIR [Suspect]
     Indication: CHRONIC HEPATITIS C
  7. AMITRIPTYLINE [Suspect]
     Indication: SLEEP DISORDER
  8. IBUPROFEN (IBUPROFEN) [Concomitant]
  9. MULTIVITAMIN (VIGRAN) (ERGOCALCIFEOL, ASCORBIC ACID, PYRIDOXINE HYDROCHLORIDE, THIAMINE HYDROCHLORIDE, RETINOL, RIBOFLAVIN, NICOTINAMIDE, CALCIUM PANTHOTHENATE) [Concomitant]
  10. IRON (IRON) [Concomitant]
  11. VITAMIN E (TOCOPHEROL) [Concomitant]

REACTIONS (8)
  - Depression [None]
  - Suicidal ideation [None]
  - Anaemia [None]
  - Fatigue [None]
  - Pancytopenia [None]
  - Quality of life decreased [None]
  - Agitation [None]
  - Loss of consciousness [None]
